FAERS Safety Report 25424718 (Version 1)
Quarter: 2025Q2

REPORT INFORMATION
  Report Type: Spontaneous
  Country: US (occurrence: US)
  Receive Date: 20250611
  Receipt Date: 20250611
  Transmission Date: 20250717
  Serious: No
  Sender: AMGEN
  Company Number: US-AMGEN-USASP2025112854

PATIENT
  Sex: Female

DRUGS (1)
  1. NEUPOGEN [Suspect]
     Active Substance: FILGRASTIM
     Indication: Neutropenia
     Route: 065
     Dates: start: 1989

REACTIONS (3)
  - Product supply issue [Unknown]
  - Intentional product misuse [Unknown]
  - Illness [Unknown]

NARRATIVE: CASE EVENT DATE: 20250101
